FAERS Safety Report 12194143 (Version 1)
Quarter: 2016Q1

REPORT INFORMATION
  Report Type: Spontaneous
  Country: US (occurrence: US)
  Receive Date: 20160321
  Receipt Date: 20160321
  Transmission Date: 20160526
  Serious: No
  Sender: FDA-Public Use
  Company Number: US-HORIZON-ACT-0070-2016

PATIENT
  Age: 2 Year
  Sex: Male

DRUGS (3)
  1. SPIRONIX [Concomitant]
  2. SEPTRA [Concomitant]
     Active Substance: SULFAMETHOXAZOLE\TRIMETHOPRIM
  3. ACTIMMUNE [Suspect]
     Active Substance: INTERFERON GAMMA-1B
     Indication: CHRONIC GRANULOMATOUS DISEASE
     Dosage: 15 ?G TIW
     Dates: start: 201506

REACTIONS (2)
  - Injection site macule [Unknown]
  - Wrong technique in product usage process [Unknown]
